FAERS Safety Report 17455770 (Version 2)
Quarter: 2020Q1

REPORT INFORMATION
  Report Type: Spontaneous
  Country: KR (occurrence: KR)
  Receive Date: 20200225
  Receipt Date: 20200304
  Transmission Date: 20200409
  Serious: Yes (Death, Life-Threatening, Hospitalization, Other)
  Sender: FDA-Public Use
  Company Number: KR-ALKEM LABORATORIES LIMITED-KR-ALKEM-2020-00398

PATIENT
  Age: 65 Year
  Sex: Female
  Weight: 56.7 kg

DRUGS (8)
  1. TRUXIMA [Suspect]
     Active Substance: RITUXIMAB-ABBS
     Indication: PEMPHIGUS
     Dosage: 2 DOSAGE FORM, ONCE IN 2 WEEKS
     Route: 042
     Dates: start: 20180727, end: 20180809
  2. MYCOPHENOLATE MOFETIL. [Suspect]
     Active Substance: MYCOPHENOLATE MOFETIL
     Indication: PEMPHIGUS
     Dosage: 2 DOSAGE FORM, QD
     Route: 048
     Dates: start: 20180726, end: 20181105
  3. TRUXIMA [Suspect]
     Active Substance: RITUXIMAB-ABBS
     Dosage: 2 DOSAGE FORM, ONCE IN 2 WEEKS
     Route: 065
     Dates: start: 20180810, end: 20180823
  4. DEXTROSE 5% [Concomitant]
     Active Substance: DEXTROSE
     Indication: PEMPHIGUS
     Dosage: 500 MLS ONE PER CYCLE
     Route: 042
     Dates: start: 20180728, end: 20180731
  5. SODIUM CHLORIDE. [Concomitant]
     Active Substance: SODIUM CHLORIDE
     Indication: PEMPHIGUS
     Dosage: 500 MLS TWO PER WEEK
     Route: 042
     Dates: start: 20180727, end: 20180809
  6. SOLONDO 5 MG [Suspect]
     Active Substance: PREDNISOLONE
     Indication: PEMPHIGUS
     Dosage: 1 DOSAGE FORM, QD
     Route: 048
     Dates: start: 20180726, end: 20181007
  7. HUMAN NORMAL IMMUNOGLOBULIN [Concomitant]
     Active Substance: HUMAN IMMUNOGLOBULIN G
     Indication: PEMPHIGUS
     Dosage: 27.5 GRAM ONE PER CYCLE
     Route: 042
     Dates: start: 20180728, end: 20180731
  8. SODIUM CHLORIDE. [Concomitant]
     Active Substance: SODIUM CHLORIDE
     Dosage: 500 MLS TWO PER WEEK
     Route: 042
     Dates: start: 20180810, end: 20180823

REACTIONS (2)
  - Acute hepatic failure [Recovering/Resolving]
  - Hepatitis B reactivation [Recovering/Resolving]

NARRATIVE: CASE EVENT DATE: 20181007
